FAERS Safety Report 9354811 (Version 2)
Quarter: 2013Q3

REPORT INFORMATION
  Report Type: Spontaneous
  Country: JP (occurrence: JP)
  Receive Date: 20130619
  Receipt Date: 20130726
  Transmission Date: 20140515
  Serious: Yes (Hospitalization)
  Sender: FDA-Public Use
  Company Number: JP-009507513-1305JPN015464

PATIENT
  Age: 21 Year
  Sex: Female
  Weight: 39.8 kg

DRUGS (47)
  1. GASTER D [Suspect]
     Indication: PROPHYLAXIS
     Dosage: 20 MG, BID
     Route: 048
     Dates: start: 20130516, end: 20130520
  2. PREDONINE [Concomitant]
     Indication: SYSTEMIC LUPUS ERYTHEMATOSUS
     Dosage: UNK
     Route: 048
     Dates: start: 20130521, end: 20130529
  3. RINDERON (BETAMETHASONE SODIUM PHOSPHATE) [Concomitant]
     Indication: SYSTEMIC LUPUS ERYTHEMATOSUS
     Dosage: UNK
     Dates: start: 20130407, end: 20130520
  4. FUNGIZONE [Concomitant]
     Indication: PROPHYLAXIS
     Dosage: UNK
     Dates: start: 20130328
  5. ACUATIM [Concomitant]
     Indication: ACNE
     Dosage: UNK
     Dates: start: 20130401
  6. ASTOMIN [Concomitant]
     Indication: COUGH
     Dosage: UNK
     Route: 048
     Dates: start: 20130404, end: 20130421
  7. LIPITOR [Concomitant]
     Indication: HYPERLIPIDAEMIA
     Dosage: UNK
     Route: 048
     Dates: start: 20130411, end: 20130425
  8. ZYPREXA [Concomitant]
     Indication: SYSTEMIC LUPUS ERYTHEMATOSUS
     Dosage: UNK
     Route: 048
     Dates: start: 20130407, end: 20130430
  9. ZYPREXA [Concomitant]
     Indication: PSYCHOTIC DISORDER
  10. ZYPREXA [Concomitant]
     Indication: SYSTEMIC LUPUS ERYTHEMATOSUS
     Dosage: UNK
     Route: 048
     Dates: start: 20130409, end: 20130430
  11. ZYPREXA [Concomitant]
     Indication: PSYCHOTIC DISORDER
  12. TAKEPRON [Concomitant]
     Indication: PROPHYLAXIS
     Dosage: UNK
     Route: 048
     Dates: start: 20130416, end: 20130523
  13. RISPERDAL [Concomitant]
     Indication: PSYCHOTIC DISORDER
     Dosage: UNK
     Route: 048
     Dates: start: 20130418, end: 20130430
  14. RISPERDAL [Concomitant]
     Indication: PSYCHOTIC DISORDER
     Dosage: UNK
     Route: 048
     Dates: start: 20130428, end: 20130430
  15. SEROQUEL [Concomitant]
     Indication: PSYCHOTIC DISORDER
     Dosage: UNK
     Route: 048
     Dates: start: 20130430, end: 20130521
  16. BENZALIN [Concomitant]
     Indication: PSYCHOTIC DISORDER
     Dosage: UNK
     Route: 048
     Dates: start: 20130502, end: 20130512
  17. LIMAS [Concomitant]
     Indication: PSYCHOTIC DISORDER
     Dosage: UNK
     Dates: start: 20130420
  18. RINDERON A [Concomitant]
     Indication: SYSTEMIC LUPUS ERYTHEMATOSUS
     Dosage: UNK
     Dates: start: 20130403, end: 20130522
  19. HYALEIN [Concomitant]
     Indication: SYSTEMIC LUPUS ERYTHEMATOSUS
     Dosage: UNK
     Route: 047
     Dates: start: 20130419
  20. NELBON [Concomitant]
     Dosage: UNK
     Route: 048
     Dates: start: 20130409, end: 20130519
  21. MOHRUS [Concomitant]
     Indication: MYALGIA
     Dosage: UNK
     Dates: start: 20130421, end: 20130430
  22. BACTRAMIN [Concomitant]
     Indication: ANTIFUNGAL PROPHYLAXIS
     Dosage: UNK
     Route: 048
     Dates: start: 20130423, end: 20130425
  23. BACTRAMIN [Concomitant]
     Indication: PNEUMOCYSTIS JIROVECII PNEUMONIA
  24. MAGLAX [Concomitant]
     Indication: INSOMNIA
     Dosage: UNK
     Route: 048
     Dates: start: 20130423, end: 20130509
  25. MAGLAX [Concomitant]
     Indication: CONSTIPATION
  26. CELECOX [Concomitant]
     Indication: HEADACHE
     Dosage: UNK
     Route: 048
     Dates: start: 20130507, end: 20130512
  27. WYPAX [Concomitant]
     Indication: PSYCHOTIC DISORDER
     Dosage: UNK
     Route: 048
     Dates: start: 20130515, end: 20130520
  28. SANCOBA [Concomitant]
     Indication: SYSTEMIC LUPUS ERYTHEMATOSUS
     Dosage: UNK
     Route: 047
     Dates: start: 20130523
  29. AKINETON INJECTION [Concomitant]
     Indication: PARKINSONISM
     Dosage: UNK
     Dates: start: 20130501, end: 20130501
  30. AKINETON INJECTION [Concomitant]
     Indication: PSYCHOTIC DISORDER
  31. PENTAGIN [Concomitant]
     Dosage: UNK
     Dates: start: 20130505, end: 20130507
  32. MAXIPIME [Concomitant]
     Indication: PNEUMONIA
     Dosage: UNK
     Dates: start: 20130507, end: 20130603
  33. VENOGLOBULIN-IH [Concomitant]
     Indication: SYSTEMIC LUPUS ERYTHEMATOSUS
     Dosage: UNK
     Dates: start: 20130507, end: 20130509
  34. NEO-MINOPHAGEN C [Concomitant]
     Dosage: UNK
     Dates: start: 20130514, end: 20130603
  35. NEUTROGIN [Concomitant]
     Dosage: UNK
     Dates: start: 20130507, end: 20130524
  36. HEPARIN [Concomitant]
     Indication: SYSTEMIC LUPUS ERYTHEMATOSUS
     Dosage: UNK
     Dates: start: 20130406, end: 20130515
  37. ATARAX P [Concomitant]
     Indication: INSOMNIA
     Dosage: UNK
     Dates: start: 20130407, end: 20130507
  38. KYTRIL [Concomitant]
     Indication: PROPHYLAXIS
     Dosage: UNK
     Dates: start: 20130409, end: 20130423
  39. ENDOXAN [Concomitant]
     Indication: SYSTEMIC LUPUS ERYTHEMATOSUS
     Dosage: UNK
     Dates: start: 20130409, end: 20130423
  40. SERENACE [Concomitant]
     Indication: PSYCHOTIC DISORDER
     Dosage: UNK
     Dates: start: 20130407, end: 20130427
  41. DENOSINE [Concomitant]
     Indication: CYTOMEGALOVIRUS INFECTION
     Dosage: UNK
     Dates: start: 20130420, end: 20130515
  42. FUTHAN [Concomitant]
     Indication: PANCREATITIS
     Dosage: UNK
     Dates: start: 20130425, end: 20130429
  43. ZOSYN [Concomitant]
     Indication: PANCREATITIS
     Dosage: UNK
     Dates: start: 20130425, end: 20130507
  44. PRIMPERAN [Concomitant]
     Indication: PROPHYLAXIS
     Dosage: UNK
     Dates: start: 20130427, end: 20130501
  45. PANTOL [Concomitant]
     Indication: PROPHYLAXIS
     Dosage: UNK
     Dates: start: 20130427, end: 20130520
  46. SILECE [Concomitant]
     Indication: PSYCHOTIC DISORDER
     Dosage: UNK
     Dates: start: 20130429, end: 20130508
  47. TAKEPRON [Concomitant]
     Indication: PROPHYLAXIS
     Dosage: UNK
     Dates: start: 20130425, end: 20130513

REACTIONS (2)
  - Pneumocystis jirovecii pneumonia [Recovered/Resolved]
  - White blood cell count decreased [Recovered/Resolved]
